FAERS Safety Report 19886870 (Version 2)
Quarter: 2021Q3

REPORT INFORMATION
  Report Type: Spontaneous
  Country: US (occurrence: US)
  Receive Date: 20210928
  Receipt Date: 20210930
  Transmission Date: 20211014
  Serious: Yes (Other)
  Sender: FDA-Public Use
  Company Number: US-JNJFOC-20210941305

PATIENT
  Sex: Female

DRUGS (2)
  1. LODINE [Concomitant]
     Active Substance: ETODOLAC
     Indication: FIBROMYALGIA
     Dates: start: 1999
  2. ELMIRON [Suspect]
     Active Substance: PENTOSAN POLYSULFATE SODIUM
     Indication: CYSTITIS INTERSTITIAL
     Route: 048
     Dates: start: 200406, end: 201610

REACTIONS (1)
  - Retinal pigmentation [Unknown]
